FAERS Safety Report 8763104 (Version 1)
Quarter: 2012Q4

REPORT INFORMATION
  Report Type: 
  Country: US (occurrence: US)
  Receive Date: 20120831
  Receipt Date: 20120831
  Transmission Date: 20130627
  Serious: Yes (Other)
  Sender: FDA-Public Use
  Company Number: US-US-EMD SERONO, INC.-7157159

PATIENT
  Age: 48 Year
  Sex: Female

DRUGS (1)
  1. REBIF [Suspect]
     Indication: PRODUCT USED FOR UNKNOWN INDICATION
     Route: 058
     Dates: start: 20110316

REACTIONS (4)
  - Anaphylactic shock [Recovering/Resolving]
  - Dehydration [Recovering/Resolving]
  - Urinary retention [Recovering/Resolving]
  - Hemiparesis [Recovering/Resolving]
